FAERS Safety Report 8854762 (Version 4)
Quarter: 2013Q1

REPORT INFORMATION
  Report Type: Report from Study
  Country: US (occurrence: US)
  Receive Date: 20121023
  Receipt Date: 20130108
  Transmission Date: 20140127
  Serious: Yes (Death, Hospitalization)
  Sender: FDA-Public Use
  Company Number: US-BRISTOL-MYERS SQUIBB COMPANY-16736654

PATIENT
  Age: 52 Year
  Sex: Male

DRUGS (1)
  1. DASATINIB [Suspect]
     Indication: CHRONIC MYELOID LEUKAEMIA
     Dosage: 140 MG:13JUL2005-27NOV2005?100 MG:28NOV2005-OCT2011
     Route: 048
     Dates: start: 20051128, end: 201110

REACTIONS (2)
  - Encephalitis viral [Fatal]
  - Status epilepticus [Recovered/Resolved]
